FAERS Safety Report 25162935 (Version 5)
Quarter: 2025Q2

REPORT INFORMATION
  Report Type: Spontaneous
  Country: CO (occurrence: CO)
  Receive Date: 20250404
  Receipt Date: 20250626
  Transmission Date: 20250716
  Serious: No
  Sender: PFIZER
  Company Number: CO-PFIZER INC-PV202500038732

PATIENT
  Sex: Female

DRUGS (1)
  1. GENOTROPIN [Suspect]
     Active Substance: SOMATROPIN
     Dosage: 0.8 MG, DAILY

REACTIONS (4)
  - Device mechanical issue [Unknown]
  - Injection site pain [Unknown]
  - Expired device used [Unknown]
  - Poor quality device used [Unknown]

NARRATIVE: CASE EVENT DATE: 20241201
